FAERS Safety Report 11914492 (Version 4)
Quarter: 2016Q3

REPORT INFORMATION
  Report Type: Report from Study
  Country: DE (occurrence: DE)
  Receive Date: 20160113
  Receipt Date: 20160704
  Transmission Date: 20161109
  Serious: Yes (Other)
  Sender: FDA-Public Use
  Company Number: DE-JNJFOC-20160108804

PATIENT
  Age: 36 Year
  Sex: Male
  Weight: 36.29 kg

DRUGS (6)
  1. L-THYROXIN [Concomitant]
     Active Substance: LEVOTHYROXINE SODIUM
     Dosage: 25MICROGRAMS.
     Route: 065
     Dates: start: 2015
  2. TILIDIN [Concomitant]
     Active Substance: NALOXONE HYDROCHLORIDE\TILIDINE HYDROCHLORIDE
     Indication: SPONDYLITIS
     Route: 065
     Dates: start: 2015
  3. SIMPONI [Suspect]
     Active Substance: GOLIMUMAB
     Indication: ANKYLOSING SPONDYLITIS
     Route: 058
     Dates: start: 20150716, end: 20150814
  4. SIMPONI [Suspect]
     Active Substance: GOLIMUMAB
     Indication: ANKYLOSING SPONDYLITIS
     Route: 058
     Dates: start: 20150416, end: 20150616
  5. NALOXONE [Concomitant]
     Active Substance: NALOXONE
     Indication: PAIN
     Route: 065
  6. NAPROXEN. [Concomitant]
     Active Substance: NAPROXEN
     Route: 065
     Dates: start: 2015

REACTIONS (3)
  - Spinal osteoarthritis [Recovered/Resolved]
  - Pneumonia [Recovered/Resolved]
  - Drug ineffective [Unknown]

NARRATIVE: CASE EVENT DATE: 2015
